FAERS Safety Report 9171285 (Version 1)
Quarter: 2013Q1

REPORT INFORMATION
  Report Type: Spontaneous
  Country: JP (occurrence: JP)
  Receive Date: 20130319
  Receipt Date: 20130319
  Transmission Date: 20140127
  Serious: Yes (Other)
  Sender: FDA-Public Use
  Company Number: JP-BRISTOL-MYERS SQUIBB COMPANY-17144353

PATIENT
  Age: 28 Year
  Sex: Female
  Weight: 67 kg

DRUGS (1)
  1. ABILIFY TABS [Suspect]
     Indication: SCHIZOPHRENIA
     Route: 048
     Dates: start: 200907

REACTIONS (7)
  - Threatened labour [Unknown]
  - Pregnancy [Recovered/Resolved]
  - Live birth [Unknown]
  - Insomnia [Unknown]
  - Vomiting in pregnancy [Unknown]
  - Iron deficiency anaemia [Unknown]
  - Abdominal pain upper [Unknown]
